FAERS Safety Report 4354071-1 (Version None)
Quarter: 2004Q2

REPORT INFORMATION
  Report Type: 
  Country: None (occurrence: None)
  Receive Date: 20040506
  Receipt Date: 20040428
  Transmission Date: 20050107
  Serious: Yes (Life-Threatening)
  Sender: FDA-Public Use
  Company Number: 200411727FR

PATIENT
  Age: 56 Year
  Sex: Male

DRUGS (5)
  1. LANTUS [Suspect]
     Indication: DIABETES MELLITUS NON-INSULIN-DEPENDENT
     Route: 058
     Dates: start: 20040407, end: 20040410
  2. AMAREL [Suspect]
     Indication: DIABETES MELLITUS NON-INSULIN-DEPENDENT
     Route: 048
     Dates: end: 20040412
  3. PYOSTACINE [Concomitant]
     Route: 048
     Dates: start: 20040301, end: 20040412
  4. MOGADON [Suspect]
     Route: 048
     Dates: start: 20040405, end: 20040407
  5. BEFIZAL [Suspect]
     Route: 048
     Dates: end: 20040412

REACTIONS (9)
  - CHOLESTASIS [None]
  - CYTOLYTIC HEPATITIS [None]
  - DYSPNOEA [None]
  - FISTULA [None]
  - INSULIN-REQUIRING TYPE II DIABETES MELLITUS [None]
  - OSTEOLYSIS [None]
  - SKIN ULCER [None]
  - STEVENS-JOHNSON SYNDROME [None]
  - SUBCUTANEOUS ABSCESS [None]
